FAERS Safety Report 9521233 (Version 4)
Quarter: 2013Q4

REPORT INFORMATION
  Report Type: Spontaneous
  Country: US (occurrence: US)
  Receive Date: 20130913
  Receipt Date: 20131107
  Transmission Date: 20140711
  Serious: Yes (Hospitalization, Disabling, Other)
  Sender: FDA-Public Use
  Company Number: US-009507513-0303USA01900

PATIENT
  Sex: Female
  Weight: 67.12 kg

DRUGS (6)
  1. FOSAMAX [Suspect]
     Indication: OSTEOPOROSIS
     Dosage: 10 MG, QD
     Route: 048
     Dates: start: 19981012, end: 200110
  2. FOSAMAX [Suspect]
     Dosage: 70 MG, QW
     Route: 048
     Dates: start: 200110
  3. PAXIL [Concomitant]
  4. ASPIRIN [Concomitant]
  5. CALCIUM (UNSPECIFIED) [Concomitant]
  6. ACCOLATE [Concomitant]

REACTIONS (36)
  - Femur fracture [Not Recovered/Not Resolved]
  - Intramedullary rod insertion [Unknown]
  - Breast cancer [Unknown]
  - Radiotherapy to breast [Unknown]
  - Osteoporosis [Not Recovered/Not Resolved]
  - Femur fracture [Not Recovered/Not Resolved]
  - Chronic obstructive pulmonary disease [Not Recovered/Not Resolved]
  - Vertebroplasty [Unknown]
  - Emphysema [Unknown]
  - Extraskeletal ossification [Unknown]
  - Forearm fracture [Unknown]
  - Spinal fracture [Unknown]
  - Bursitis [Unknown]
  - Radius fracture [Unknown]
  - Eczema [Unknown]
  - Bone cyst [Unknown]
  - Arthropathy [Unknown]
  - Postoperative fever [Recovering/Resolving]
  - Anaemia postoperative [Unknown]
  - Arthropathy [Unknown]
  - Cholelithiasis [Unknown]
  - Spinal compression fracture [Unknown]
  - Depression [Unknown]
  - Intervertebral disc degeneration [Unknown]
  - Subcutaneous abscess [Unknown]
  - Mycobacterium avium complex infection [Unknown]
  - Furuncle [Unknown]
  - Folliculitis [Unknown]
  - Nephrolithiasis [Recovered/Resolved]
  - Splenic granuloma [Unknown]
  - Oedema peripheral [Unknown]
  - Arthralgia [Unknown]
  - Drug ineffective [Unknown]
  - Drug ineffective [Unknown]
  - Back pain [Not Recovered/Not Resolved]
  - Arthralgia [Unknown]
